FAERS Safety Report 23504087 (Version 1)
Quarter: 2024Q1

REPORT INFORMATION
  Report Type: Spontaneous
  Country: US (occurrence: US)
  Receive Date: 20240209
  Receipt Date: 20240209
  Transmission Date: 20240410
  Serious: Yes (Hospitalization)
  Sender: FDA-Public Use
  Company Number: US-ELI_LILLY_AND_COMPANY-US202401017905

PATIENT
  Sex: Female

DRUGS (1)
  1. MOUNJARO [Suspect]
     Active Substance: TIRZEPATIDE
     Indication: Product use in unapproved indication
     Dosage: UNK UNK, UNKNOWN
     Route: 065

REACTIONS (6)
  - Vomiting [Not Recovered/Not Resolved]
  - Blood chloride decreased [Unknown]
  - Blood creatine increased [Unknown]
  - Blood sodium decreased [Unknown]
  - Off label use [Unknown]
  - Suspected product tampering [Unknown]
